FAERS Safety Report 17274977 (Version 1)
Quarter: 2020Q1

REPORT INFORMATION
  Report Type: Spontaneous
  Country: US (occurrence: US)
  Receive Date: 20200116
  Receipt Date: 20200116
  Transmission Date: 20200409
  Serious: Yes (Hospitalization, Other)
  Sender: FDA-Public Use
  Company Number: US-NOVAST LABORATORIES LTD.-2020NOV000003

PATIENT
  Sex: Female
  Weight: 3.37 kg

DRUGS (1)
  1. PHENTERMINE. [Suspect]
     Active Substance: PHENTERMINE
     Indication: PRODUCT USED FOR UNKNOWN INDICATION
     Dosage: UNK
     Route: 064

REACTIONS (5)
  - Cerebral palsy [Unknown]
  - Perinatal stroke [Unknown]
  - Foetal exposure during pregnancy [Unknown]
  - Porencephaly [Unknown]
  - Developmental delay [Unknown]
